FAERS Safety Report 16249904 (Version 1)
Quarter: 2019Q2

REPORT INFORMATION
  Report Type: Spontaneous
  Country: US (occurrence: US)
  Receive Date: 20190429
  Receipt Date: 20190429
  Transmission Date: 20190711
  Serious: No
  Sender: FDA-Public Use
  Company Number: US-MYLANLABS-2019M1034839

PATIENT
  Sex: Male
  Weight: 69 kg

DRUGS (1)
  1. OMEPRAZOLE DELAYED-RELEASE CAPSULES, USP [Suspect]
     Active Substance: OMEPRAZOLE
     Indication: GASTROOESOPHAGEAL REFLUX DISEASE
     Dosage: UNK
     Route: 048

REACTIONS (3)
  - Insomnia [Recovering/Resolving]
  - Gastrooesophageal reflux disease [Recovering/Resolving]
  - Therapeutic product effect decreased [Not Recovered/Not Resolved]
